FAERS Safety Report 4275569-0 (Version None)
Quarter: 2004Q1

REPORT INFORMATION
  Report Type: 
  Country: None (occurrence: None)
  Receive Date: 20040116
  Receipt Date: 20040107
  Transmission Date: 20041129
  Serious: Yes (Hospitalization, Disabling, Other)
  Sender: FDA-Public Use
  Company Number: 2003-12-1572

PATIENT
  Age: 36 Year
  Sex: Female

DRUGS (1)
  1. INTRON A [Suspect]
     Indication: CHRONIC MYELOID LEUKAEMIA
     Dosage: 7 MIU SUBCUTANEOUS
     Route: 058
     Dates: start: 20010401, end: 20030101

REACTIONS (9)
  - DRUG SPECIFIC ANTIBODY PRESENT [None]
  - DYSARTHRIA [None]
  - LOSS OF CONSCIOUSNESS [None]
  - LYMPHADENOPATHY [None]
  - NERVOUS SYSTEM DISORDER [None]
  - PETIT MAL EPILEPSY [None]
  - RASH MORBILLIFORM [None]
  - SERUM SICKNESS [None]
  - SKIN HYPERPIGMENTATION [None]
